FAERS Safety Report 20643556 (Version 8)
Quarter: 2025Q1

REPORT INFORMATION
  Report Type: Report from Study
  Country: CA (occurrence: CA)
  Receive Date: 20220328
  Receipt Date: 20250121
  Transmission Date: 20250409
  Serious: Yes (Hospitalization, Other)
  Sender: TAKEDA
  Company Number: CA-TAKEDA-2022TUS017621

PATIENT
  Age: 42 Year
  Sex: Female

DRUGS (5)
  1. VEDOLIZUMAB [Suspect]
     Active Substance: VEDOLIZUMAB
     Indication: Crohn^s disease
  2. VEDOLIZUMAB [Suspect]
     Active Substance: VEDOLIZUMAB
     Dosage: 300 MILLIGRAM, Q4WEEKS
     Dates: start: 20220324
  3. VEDOLIZUMAB [Suspect]
     Active Substance: VEDOLIZUMAB
     Dosage: 300 MILLIGRAM, Q4WEEKS
  4. VEDOLIZUMAB [Suspect]
     Active Substance: VEDOLIZUMAB
     Dosage: 300 MILLIGRAM, Q4WEEKS
  5. VEDOLIZUMAB [Suspect]
     Active Substance: VEDOLIZUMAB
     Dosage: 300 MILLIGRAM, Q4WEEKS

REACTIONS (8)
  - Crohn^s disease [Not Recovered/Not Resolved]
  - Abdominal pain [Recovering/Resolving]
  - Anal fissure [Recovering/Resolving]
  - Constipation [Recovering/Resolving]
  - Therapy partial responder [Unknown]
  - Off label use [Unknown]
  - Aphthous ulcer [Unknown]
  - Arthralgia [Unknown]

NARRATIVE: CASE EVENT DATE: 20220324
